FAERS Safety Report 21090911 (Version 4)
Quarter: 2023Q4

REPORT INFORMATION
  Report Type: Spontaneous
  Country: US (occurrence: US)
  Receive Date: 20220716
  Receipt Date: 20231123
  Transmission Date: 20240110
  Serious: Yes (Other)
  Sender: FDA-Public Use
  Company Number: US-BRISTOL-MYERS SQUIBB COMPANY-2022-069439

PATIENT
  Age: 79 Year
  Sex: Male

DRUGS (7)
  1. REVLIMID [Suspect]
     Active Substance: LENALIDOMIDE
     Indication: Myelodysplastic syndrome
     Dosage: DAILY
     Route: 048
     Dates: start: 202206
  2. REVLIMID [Suspect]
     Active Substance: LENALIDOMIDE
     Dosage: 2.5 MG FOR 21 DAYS ON 7 DAYS OFF
     Route: 048
     Dates: start: 20220602
  3. CYANOCOBALAMIN [Concomitant]
     Active Substance: CYANOCOBALAMIN
     Indication: Vitamin supplementation
     Route: 048
  4. CENTRUM SILVER [ASCORBIC ACID;BIOTIN;CALCIUM;CALCIUM PANTOTHENATE;CHLO [Concomitant]
     Indication: Vitamin supplementation
     Route: 048
  5. MAGNESIUM HYDROXIDE [Concomitant]
     Active Substance: MAGNESIUM HYDROXIDE
     Indication: Mineral deficiency
     Route: 048
  6. NICORETTE [Concomitant]
     Active Substance: NICOTINE
     Indication: Ex-tobacco user
     Dosage: CHEWABLE
  7. FUROSEMIDE [Concomitant]
     Active Substance: FUROSEMIDE
     Indication: Supplementation therapy
     Route: 048
     Dates: start: 20220510

REACTIONS (6)
  - Macular degeneration [Not Recovered/Not Resolved]
  - Dysgeusia [Unknown]
  - Haemoglobin decreased [Unknown]
  - Taste disorder [Unknown]
  - Thrombocytopenia [Recovered/Resolved]
  - Product dose omission issue [Unknown]

NARRATIVE: CASE EVENT DATE: 20220705
